FAERS Safety Report 8060878-X (Version None)
Quarter: 2012Q1

REPORT INFORMATION
  Report Type: 
  Country: None (occurrence: None)
  Receive Date: 20120120
  Receipt Date: 20110224
  Transmission Date: 20120608
  Serious: No
  Sender: FDA-Public Use
  Company Number: US-ALLERGAN-1102661US

PATIENT
  Age: 69 Year
  Sex: Female

DRUGS (2)
  1. REFRESH PLUS [Concomitant]
     Indication: POSTOPERATIVE CARE
     Dosage: BID TO BOTH EYES
     Route: 047
  2. RESTASIS [Suspect]
     Indication: POSTOPERATIVE CARE
     Dosage: 1 GTT, BID, OU
     Route: 047
     Dates: start: 20110101, end: 20110101

REACTIONS (3)
  - DRY EYE [None]
  - EYE IRRITATION [None]
  - EYE PAIN [None]
